FAERS Safety Report 4547932-1 (Version None)
Quarter: 2004Q4

REPORT INFORMATION
  Report Type: 
  Country: None (occurrence: None)
  Receive Date: 20041227
  Receipt Date: 20041015
  Transmission Date: 20050328
  Serious: No
  Sender: FDA-Public Use
  Company Number: 04P-163-0277642-00

PATIENT
  Age: 73 Year
  Sex: Female
  Weight: 63.5036 kg

DRUGS (18)
  1. HUMIRA [Suspect]
     Indication: OSTEOARTHRITIS
     Dosage: 40 MG, 1 IN 2 WK, SUBCUTANEOUS
     Route: 058
     Dates: start: 20040101
  2. HUMIRA [Suspect]
     Indication: RHEUMATOID ARTHRITIS
     Dosage: 40 MG, 1 IN 2 WK, SUBCUTANEOUS
     Route: 058
     Dates: start: 20040101
  3. ERGOCALCIFEROL [Concomitant]
  4. LEVOTHYROXINE SODIUM [Concomitant]
  5. TYLENOL PM [Concomitant]
  6. ACETAMINOPHEN [Concomitant]
  7. TOPROL-XL [Concomitant]
  8. NITROGLYCERIN [Concomitant]
  9. LOVASTATIN [Concomitant]
  10. WARFARIN [Concomitant]
  11. METHOTREXATE SODIUM [Concomitant]
  12. CAPTOPRIL [Concomitant]
  13. PREDNISONE [Concomitant]
  14. ALENDRONATE SODIUM [Concomitant]
  15. ACETYLSALICYLIC ACID SRT [Concomitant]
  16. LANSOPRAZOLE [Concomitant]
  17. FOLIC ACID [Concomitant]
  18. OXYBUTYNIN [Concomitant]

REACTIONS (1)
  - INJECTION SITE BURNING [None]
